FAERS Safety Report 25353823 (Version 1)
Quarter: 2025Q2

REPORT INFORMATION
  Report Type: Spontaneous
  Country: SE (occurrence: SE)
  Receive Date: 20250523
  Receipt Date: 20250523
  Transmission Date: 20250717
  Serious: Yes (Other)
  Sender: MYLAN
  Company Number: None

PATIENT
  Age: 381 Day
  Sex: Male
  Weight: 11 kg

DRUGS (1)
  1. SERTRALINE [Suspect]
     Active Substance: SERTRALINE HYDROCHLORIDE
     Indication: Depression
     Dosage: 1 DOSAGE FORM, QD (1 T/D  [ASR COMMEN: MEANING 1 TABLET /DAY])
     Dates: start: 20250317, end: 20250429

REACTIONS (3)
  - Lethargy [Recovered/Resolved]
  - Depressed mood [Recovered/Resolved]
  - Exposure via breast milk [Recovered/Resolved]

NARRATIVE: CASE EVENT DATE: 20250101
